FAERS Safety Report 8196759-0 (Version None)
Quarter: 2012Q1

REPORT INFORMATION
  Report Type: 
  Country: None (occurrence: None)
  Receive Date: 20120309
  Receipt Date: 20120227
  Transmission Date: 20120608
  Serious: Yes (Other)
  Sender: FDA-Public Use
  Company Number: PHHY2011DE113473

PATIENT
  Age: 65 Year
  Sex: Male

DRUGS (6)
  1. RASILEZ [Suspect]
     Dosage: 300 MG, QD
     Route: 048
     Dates: start: 20111210, end: 20111224
  2. NITRENDIPINE [Concomitant]
     Indication: HYPERTENSION
     Route: 048
     Dates: start: 20111225
  3. GLUCOPHAGE [Concomitant]
     Indication: DIABETES MELLITUS
     Route: 048
  4. EXFORGE HCT [Suspect]
  5. ANTIDIABETIC [Concomitant]
     Indication: DIABETES MELLITUS
     Route: 048
  6. RASILEZ [Suspect]
     Indication: HYPERTENSION
     Dosage: 150 MG, QD
     Route: 048
     Dates: start: 20111001, end: 20111209

REACTIONS (7)
  - GENERAL PHYSICAL HEALTH DETERIORATION [None]
  - DRUG INEFFECTIVE [None]
  - VISION BLURRED [None]
  - EYE HAEMORRHAGE [None]
  - RETINAL TEAR [None]
  - BLOOD PRESSURE SYSTOLIC INCREASED [None]
  - SWELLING [None]
